FAERS Safety Report 11878883 (Version 1)
Quarter: 2015Q4

REPORT INFORMATION
  Report Type: Spontaneous
  Country: JP (occurrence: JP)
  Receive Date: 20151230
  Receipt Date: 20151230
  Transmission Date: 20160305
  Serious: Yes (Death, Disabling)
  Sender: FDA-Public Use
  Company Number: JP-BRISTOL-MYERS SQUIBB COMPANY-BMS-2015-044653

PATIENT
  Age: 76 Year
  Sex: Male
  Weight: 47 kg

DRUGS (11)
  1. ERBITUX [Suspect]
     Active Substance: CETUXIMAB
     Dosage: 250 MG/M2, UNK
     Route: 041
     Dates: start: 20130318
  2. NEDAPLATIN [Suspect]
     Active Substance: NEDAPLATIN
     Dosage: 30 MG, Q3WK
     Route: 041
     Dates: start: 20130408, end: 20130408
  3. POLARAMINE [Concomitant]
     Active Substance: DEXCHLORPHENIRAMINE MALEATE
     Indication: PREMEDICATION
     Dosage: 5 MG, QWK
     Route: 041
     Dates: start: 20130311, end: 20130311
  4. 5-FLUOROURACIL                     /00098801/ [Suspect]
     Active Substance: FLUOROURACIL
     Dosage: 1000 UNK, Q3WK
     Route: 041
     Dates: start: 20130409, end: 20130412
  5. POLARAMINE [Concomitant]
     Active Substance: DEXCHLORPHENIRAMINE MALEATE
     Dosage: 5 MG, QWK
     Route: 041
     Dates: start: 20130318
  6. ERBITUX [Suspect]
     Active Substance: CETUXIMAB
     Indication: HYPOPHARYNGEAL CANCER
     Dosage: 400 MG/M2, QWK
     Route: 041
     Dates: start: 20130311, end: 20130311
  7. 5-FLUOROURACIL                     /00098801/ [Suspect]
     Active Substance: FLUOROURACIL
     Indication: HYPOPHARYNGEAL CANCER
     Dosage: 1000 MG, Q3WK
     Route: 041
     Dates: start: 20130312, end: 20130315
  8. ALOXTRA [Concomitant]
     Indication: PROPHYLAXIS OF NAUSEA AND VOMITING
     Dosage: .75 MG, Q3WK
     Route: 041
     Dates: start: 20130311, end: 20130311
  9. NEDAPLATIN [Suspect]
     Active Substance: NEDAPLATIN
     Indication: HYPOPHARYNGEAL CANCER
     Dosage: 90 MG, Q3WK
     Route: 041
     Dates: start: 20130311, end: 20130311
  10. DEXAMETHASONE. [Concomitant]
     Active Substance: DEXAMETHASONE
     Indication: PREMEDICATION
     Route: 041
  11. ALOXTRA [Concomitant]
     Dosage: .75 MG, Q3WK
     Route: 041
     Dates: start: 20130408, end: 20130408

REACTIONS (2)
  - Shock haemorrhagic [Fatal]
  - Pneumonia [Not Recovered/Not Resolved]

NARRATIVE: CASE EVENT DATE: 20130412
